FAERS Safety Report 4580964-6 (Version None)
Quarter: 2005Q1

REPORT INFORMATION
  Report Type: 
  Country: None (occurrence: None)
  Receive Date: 20050214
  Receipt Date: 20040707
  Transmission Date: 20050727
  Serious: No
  Sender: FDA-Public Use
  Company Number: US-GLAXOSMITHKLINE-A0517256A

PATIENT
  Sex: Male

DRUGS (6)
  1. LAMICTAL [Suspect]
     Dosage: 12.5MG TWICE PER DAY
     Route: 048
  2. DEPAKOTE [Suspect]
     Dosage: 125MG PER DAY
     Dates: start: 20040702
  3. VALPROATE [Concomitant]
  4. KLONOPIN [Concomitant]
  5. RITALIN [Concomitant]
  6. BUPRENORPHINE [Concomitant]

REACTIONS (1)
  - INFLUENZA LIKE ILLNESS [None]
